FAERS Safety Report 4339643-2 (Version None)
Quarter: 2004Q2

REPORT INFORMATION
  Report Type: 
  Country: None (occurrence: None)
  Receive Date: 20040415
  Receipt Date: 20040322
  Transmission Date: 20050107
  Serious: Yes (Hospitalization)
  Sender: FDA-Public Use
  Company Number: JP-MERCK-0403USA02142

PATIENT
  Age: 66 Year
  Sex: Male
  Weight: 56 kg

DRUGS (6)
  1. CANDESARTAN CILEXETIL [Concomitant]
     Indication: HYPERTENSION
     Route: 065
     Dates: start: 20000601
  2. PRIMAXIN [Suspect]
     Indication: CATHETER RELATED INFECTION
     Route: 042
     Dates: start: 20040222, end: 20040223
  3. LEVOFLOXACIN [Concomitant]
     Route: 065
     Dates: start: 20040217, end: 20040223
  4. NIFEDIPINE [Concomitant]
     Indication: HYPERTENSION
     Route: 065
     Dates: start: 19980201
  5. PROPRANOLOL HYDROCHLORIDE [Concomitant]
     Indication: HYPERTENSION
     Route: 065
     Dates: start: 19980201
  6. TERAZOSIN HYDROCHLORIDE [Concomitant]
     Indication: HYPERTENSION
     Route: 065
     Dates: start: 20000601

REACTIONS (14)
  - ALANINE AMINOTRANSFERASE DECREASED [None]
  - ANOREXIA [None]
  - BLOOD CREATININE INCREASED [None]
  - BLOOD UREA INCREASED [None]
  - DELIRIUM [None]
  - DIZZINESS [None]
  - HAEMATOCRIT DECREASED [None]
  - HAEMOGLOBIN DECREASED [None]
  - INSOMNIA [None]
  - NAUSEA [None]
  - PERITONEAL DIALYSIS [None]
  - PERITONEAL FLUID ANALYSIS ABNORMAL [None]
  - RED BLOOD CELL COUNT DECREASED [None]
  - VOMITING [None]
